FAERS Safety Report 6760738-8 (Version None)
Quarter: 2010Q2

REPORT INFORMATION
  Report Type: 
  Country: None (occurrence: None)
  Receive Date: 20100608
  Receipt Date: 20100603
  Transmission Date: 20101027
  Serious: Yes (Hospitalization)
  Sender: FDA-Public Use
  Company Number: FR-WYE-G06224710

PATIENT
  Sex: Male

DRUGS (4)
  1. TAZOCILLINE [Suspect]
     Indication: PYREXIA
     Dosage: UNKNOWN
     Route: 065
     Dates: start: 20100425, end: 20100503
  2. VANCOMYCIN [Suspect]
     Indication: ESCHERICHIA SEPSIS
     Dosage: UNKNOWN
     Route: 065
     Dates: start: 20100501, end: 20100503
  3. IMIPENEM AND CILASTATIN [Concomitant]
     Indication: SEPSIS
     Dosage: UNKNOWN
     Route: 065
     Dates: start: 20100503
  4. AMIKIN [Suspect]
     Dosage: 1 SINGLE DOSE
     Dates: start: 20100504, end: 20100504

REACTIONS (4)
  - ATRIAL FIBRILLATION [None]
  - PRURITUS GENERALISED [None]
  - PURPURA [None]
  - RASH MACULO-PAPULAR [None]
